FAERS Safety Report 5032257-0 (Version None)
Quarter: 2006Q2

REPORT INFORMATION
  Report Type: 
  Country: None (occurrence: None)
  Receive Date: 20060619
  Receipt Date: 20060609
  Transmission Date: 20061013
  Serious: Yes (Death, Hospitalization)
  Sender: FDA-Public Use
  Company Number: US200604002392

PATIENT
  Age: 45 Year
  Sex: Female

DRUGS (2)
  1. ALIMTA [Suspect]
     Indication: LUNG NEOPLASM MALIGNANT
  2. THALIDOMIDE (THALIDOMIDE) [Concomitant]

REACTIONS (1)
  - GASTROINTESTINAL TOXICITY [None]
